FAERS Safety Report 5892550-6 (Version None)
Quarter: 2008Q3

REPORT INFORMATION
  Report Type: 
  Country: None (occurrence: None)
  Receive Date: 20080923
  Receipt Date: 20080909
  Transmission Date: 20090109
  Serious: Yes (Hospitalization, Other)
  Sender: FDA-Public Use
  Company Number: FR-ELI_LILLY_AND_COMPANY-FR200809001746

PATIENT
  Sex: Male

DRUGS (5)
  1. GEMZAR [Suspect]
     Indication: ADENOCARCINOMA PANCREAS
     Dosage: UNK, UNKNOWN
     Route: 042
     Dates: start: 20080101, end: 20080411
  2. NEBILOX [Concomitant]
     Dosage: UNK, UNKNOWN
     Route: 048
     Dates: end: 20080506
  3. LESCOL [Concomitant]
     Dosage: UNK, UNKNOWN
     Route: 048
  4. XYZAL [Concomitant]
     Dosage: UNK, UNKNOWN
     Route: 048
     Dates: end: 20080506
  5. ATARAX [Concomitant]
     Dosage: UNK, UNKNOWN
     Route: 048
     Dates: end: 20080506

REACTIONS (9)
  - CATHETER THROMBOSIS [None]
  - GLOMERULONEPHROPATHY [None]
  - NEPHROTIC SYNDROME [None]
  - PROSTATITIS [None]
  - PULMONARY OEDEMA [None]
  - RENAL FAILURE [None]
  - RENAL TUBULAR DISORDER [None]
  - SEPSIS [None]
  - TESTICULAR ABSCESS [None]
